FAERS Safety Report 9079377 (Version 1)
Quarter: 2013Q1

REPORT INFORMATION
  Report Type: Report from Study
  Country: US (occurrence: US)
  Receive Date: 20130130
  Receipt Date: 20130130
  Transmission Date: 20140127
  Serious: No
  Sender: FDA-Public Use
  Company Number: US-ABBOTT-12P-163-0958407-00

PATIENT
  Sex: Male

DRUGS (1)
  1. HUMIRA 40 MG/0.8 ML PEN [Suspect]
     Indication: PSORIATIC ARTHROPATHY
     Dosage: EVERY OTHER WEEK, AS DIRECTED
     Route: 058
     Dates: start: 201106

REACTIONS (3)
  - Intraocular pressure increased [Unknown]
  - Rash [Unknown]
  - Psoriasis [Unknown]
